FAERS Safety Report 6754577-1 (Version None)
Quarter: 2010Q2

REPORT INFORMATION
  Report Type: 
  Country: None (occurrence: None)
  Receive Date: 20100603
  Receipt Date: 20100521
  Transmission Date: 20101027
  Serious: Yes (Hospitalization)
  Sender: FDA-Public Use
  Company Number: US-ELI_LILLY_AND_COMPANY-US201005007103

PATIENT
  Sex: Male

DRUGS (3)
  1. ZYPREXA ZYDIS [Suspect]
     Indication: BIPOLAR DISORDER
     Dosage: 10 MG, UNKNOWN
     Route: 065
  2. HALDOL [Concomitant]
  3. ATIVAN [Concomitant]

REACTIONS (3)
  - EXTRAPYRAMIDAL DISORDER [None]
  - HOSPITALISATION [None]
  - HYPOAESTHESIA ORAL [None]
